FAERS Safety Report 17966377 (Version 1)
Quarter: 2020Q3

REPORT INFORMATION
  Report Type: Spontaneous
  Country: DE (occurrence: DE)
  Receive Date: 20200701
  Receipt Date: 20200701
  Transmission Date: 20201103
  Serious: Yes (Other)
  Sender: FDA-Public Use
  Company Number: DE-ROCHE-2633998

PATIENT
  Age: 51 Year
  Sex: Female

DRUGS (1)
  1. MABTHERA [Suspect]
     Active Substance: RITUXIMAB
     Indication: RHEUMATOID ARTHRITIS
     Dosage: 14 CYLCES
     Route: 065

REACTIONS (3)
  - Type 1 diabetes mellitus [Unknown]
  - Immunoglobulins decreased [Not Recovered/Not Resolved]
  - Osteoporosis [Unknown]
